FAERS Safety Report 6368555-8 (Version None)
Quarter: 2009Q3

REPORT INFORMATION
  Report Type: 
  Country: None (occurrence: None)
  Receive Date: 20090922
  Receipt Date: 20080903
  Transmission Date: 20100115
  Serious: Yes (Hospitalization)
  Sender: FDA-Public Use
  Company Number: US-BRISTOL-MYERS SQUIBB COMPANY-14297618

PATIENT
  Age: 63 Year
  Sex: Female

DRUGS (6)
  1. BUSPAR [Suspect]
     Indication: PAIN
     Dates: end: 20040901
  2. AMBIEN [Suspect]
     Indication: INSOMNIA
     Dosage: AMBIEN TABLETS - 10MG HS
     Route: 048
     Dates: end: 20040901
  3. OXYCONTIN [Suspect]
     Indication: PAIN
     Dates: end: 20040901
  4. LORTAB [Suspect]
     Indication: PAIN
  5. HYDROCHLOROTHIAZIDE [Concomitant]
     Route: 065
  6. BLOOD PRESSURE MEDICATION [Concomitant]

REACTIONS (2)
  - HALLUCINATIONS, MIXED [None]
  - WITHDRAWAL SYNDROME [None]
